FAERS Safety Report 8533717 (Version 3)
Quarter: 2013Q2

REPORT INFORMATION
  Report Type: Spontaneous
  Country: US (occurrence: US)
  Receive Date: 20120427
  Receipt Date: 20130416
  Transmission Date: 20140414
  Serious: Yes (Other)
  Sender: FDA-Public Use
  Company Number: US-BAYER-2012-040039

PATIENT
  Age: 20 Year
  Sex: Female

DRUGS (2)
  1. YAZ [Suspect]
     Indication: ACNE
     Dosage: UNK
     Dates: start: 200810, end: 201012
  2. YASMIN [Suspect]
     Indication: ACNE
     Dosage: UNK
     Dates: start: 200810, end: 201012

REACTIONS (8)
  - Gallbladder disorder [None]
  - Cholecystitis chronic [None]
  - Pain [None]
  - Injury [None]
  - Emotional distress [None]
  - Dyspepsia [None]
  - Dyspepsia [None]
  - Anxiety [None]
